FAERS Safety Report 9143758 (Version 2)
Quarter: 2013Q3

REPORT INFORMATION
  Report Type: Report from Study
  Country: GB (occurrence: GB)
  Receive Date: 20130306
  Receipt Date: 20130806
  Transmission Date: 20140515
  Serious: Yes (Other)
  Sender: FDA-Public Use
  Company Number: GB-ROCHE-1197304

PATIENT
  Sex: Female
  Weight: 51 kg

DRUGS (4)
  1. RITUXIMAB [Suspect]
     Indication: RHEUMATOID ARTHRITIS
     Dosage: LAST DOSE PRIOR TO SAE ON 01/AUG/2009
     Route: 065
     Dates: start: 20090717
  2. TOCILIZUMAB [Suspect]
     Indication: RHEUMATOID ARTHRITIS
     Route: 065
     Dates: start: 201102
  3. LEFLUNOMIDE [Concomitant]
     Route: 065
     Dates: start: 20081022
  4. METHOTREXATE [Concomitant]

REACTIONS (1)
  - Anal cancer [Unknown]
